FAERS Safety Report 19692086 (Version 2)
Quarter: 2021Q3

REPORT INFORMATION
  Report Type: Report from Study
  Country: US (occurrence: US)
  Receive Date: 20210812
  Receipt Date: 20210816
  Transmission Date: 20211014
  Serious: Yes (Hospitalization)
  Sender: FDA-Public Use
  Company Number: US-JNJFOC-20210807138

PATIENT
  Sex: Female
  Weight: 90.5 kg

DRUGS (2)
  1. VELETRI [Suspect]
     Active Substance: EPOPROSTENOL
     Indication: PULMONARY HYPERTENSION
     Dosage: VELETRI 1.5 MG VIAL INTRAVENOUS CONTINUOUS
     Route: 042
  2. ADEMPAS [Concomitant]
     Active Substance: RIOCIGUAT

REACTIONS (2)
  - Peripheral swelling [Recovering/Resolving]
  - Adverse drug reaction [Recovering/Resolving]
